FAERS Safety Report 5988490-4 (Version None)
Quarter: 2008Q4

REPORT INFORMATION
  Report Type: 
  Country: None (occurrence: None)
  Receive Date: 20081204
  Receipt Date: 20081118
  Transmission Date: 20090506
  Serious: Yes (Other)
  Sender: FDA-Public Use
  Company Number: CIP08002482

PATIENT
  Age: 83 Year
  Sex: Male

DRUGS (2)
  1. RISEDRONATE SODIUM [Suspect]
     Indication: OSTEOPOROSIS PROPHYLAXIS
     Dosage: 2.5 MG DAILY, ORAL
     Route: 048
  2. ADRENOCORTICOTROPHIC HORMONE (CORTICOTROPIN) [Suspect]
     Indication: INTERSTITIAL LUNG DISEASE

REACTIONS (2)
  - JAW DISORDER [None]
  - ORAL TORUS [None]
